FAERS Safety Report 6819695-8 (Version None)
Quarter: 2010Q3

REPORT INFORMATION
  Report Type: 
  Country: None (occurrence: None)
  Receive Date: 20100707
  Receipt Date: 20100628
  Transmission Date: 20110219
  Serious: Yes (Hospitalization)
  Sender: FDA-Public Use
  Company Number: DE-SANOFI-AVENTIS-2010SA021510

PATIENT
  Age: 74 Year
  Sex: Female
  Weight: 76 kg

DRUGS (9)
  1. MULTAQ [Suspect]
     Route: 048
     Dates: start: 20100201, end: 20100323
  2. BISOPROLOL [Concomitant]
     Indication: PRODUCT USED FOR UNKNOWN INDICATION
     Route: 048
  3. OLMESARTAN MEDOXOMIL [Concomitant]
     Indication: PRODUCT USED FOR UNKNOWN INDICATION
     Route: 065
  4. SPIRONOLACTONE [Concomitant]
     Indication: PRODUCT USED FOR UNKNOWN INDICATION
     Route: 065
  5. FUROSEMID [Concomitant]
     Indication: PRODUCT USED FOR UNKNOWN INDICATION
     Dosage: DOSAGE: 1-1-0
     Route: 065
  6. FUROSEMID [Concomitant]
     Dosage: DOSAGE: 1-1/2-0
     Route: 065
  7. PANTOPRAZOLE [Concomitant]
     Indication: PRODUCT USED FOR UNKNOWN INDICATION
     Route: 065
  8. NOVODIGAL [Concomitant]
     Indication: PRODUCT USED FOR UNKNOWN INDICATION
     Route: 065
  9. MARCUMAR [Concomitant]
     Indication: PRODUCT USED FOR UNKNOWN INDICATION
     Dosage: DOSAGE: ACCORDING TO INR
     Route: 065

REACTIONS (10)
  - ABDOMINAL PAIN LOWER [None]
  - CHILLS [None]
  - COUGH [None]
  - DYSURIA [None]
  - GENERAL PHYSICAL HEALTH DETERIORATION [None]
  - HAEMATURIA [None]
  - LEUKOCYTOCLASTIC VASCULITIS [None]
  - PAIN IN EXTREMITY [None]
  - PYREXIA [None]
  - RASH GENERALISED [None]
